FAERS Safety Report 11637230 (Version 1)
Quarter: 2015Q4

REPORT INFORMATION
  Report Type: Spontaneous
  Country: BR (occurrence: BR)
  Receive Date: 20151016
  Receipt Date: 20151016
  Transmission Date: 20160304
  Serious: Yes (Other)
  Sender: FDA-Public Use
  Company Number: BR-PFIZER INC-2015341233

PATIENT
  Age: 72 Year
  Sex: Female
  Weight: 61 kg

DRUGS (2)
  1. TIMOPTOL [Concomitant]
     Active Substance: TIMOLOL
     Dosage: 2 GTT (1 DROP IN EACH EYE), UNSPECIFIED FREQUENCY
     Route: 047
  2. XALATAN [Suspect]
     Active Substance: LATANOPROST
     Indication: GLAUCOMA
     Dosage: 2 GTT, UNK, (1 DROP IN EACH EYE)
     Route: 047
     Dates: start: 2010, end: 201507

REACTIONS (1)
  - Cataract [Unknown]
